FAERS Safety Report 5158101-9 (Version None)
Quarter: 2006Q4

REPORT INFORMATION
  Report Type: 
  Country: None (occurrence: None)
  Receive Date: 20061117
  Receipt Date: 20061106
  Transmission Date: 20070319
  Serious: Yes (Death)
  Sender: FDA-Public Use
  Company Number: 2006135436

PATIENT
  Age: 50 Year
  Sex: Female

DRUGS (8)
  1. SUTENT [Suspect]
     Indication: METASTATIC RENAL CELL CARCINOMA
     Dosage: 37.5 MG (37.5 MG, 1 IN 1 D), ORAL
     Route: 048
     Dates: start: 20060912, end: 20061031
  2. FENTANYL [Concomitant]
  3. FUROSEMIDE [Concomitant]
  4. DUPHALAC [Concomitant]
  5. METAMIZOL ^NORMON^ (METAMIZOLE MAGNESIUM) [Concomitant]
  6. HEPARIN [Concomitant]
  7. LORAZEPAM [Concomitant]
  8. MORPHINE SULFATE [Concomitant]

REACTIONS (3)
  - DISEASE PROGRESSION [None]
  - GENERAL PHYSICAL HEALTH DETERIORATION [None]
  - METASTATIC RENAL CELL CARCINOMA [None]
